FAERS Safety Report 4319028-5 (Version None)
Quarter: 2004Q1

REPORT INFORMATION
  Report Type: 
  Country: None (occurrence: None)
  Receive Date: 20040316
  Receipt Date: 20040303
  Transmission Date: 20041129
  Serious: Yes (Hospitalization)
  Sender: FDA-Public Use
  Company Number: JP_040302730

PATIENT
  Age: 48 Year
  Sex: Male
  Weight: 60 kg

DRUGS (6)
  1. ONCOVIN [Suspect]
     Indication: B-CELL LYMPHOMA
     Dosage: 2 MG OTHER
     Route: 050
     Dates: start: 20020717, end: 20021201
  2. CYCLOPHOSPHAMIDE [Concomitant]
  3. DOXORUBICIN HCL [Concomitant]
  4. PREDNISOLONE [Concomitant]
  5. RITUXIMAB [Concomitant]
  6. GRANULOCYTE COLONY STIMULATING FACTOR [Concomitant]

REACTIONS (6)
  - GASTROINTESTINAL DISORDER [None]
  - HAEMATOCHEZIA [None]
  - HAEMOGLOBIN DECREASED [None]
  - LABORATORY TEST ABNORMAL [None]
  - SHOCK [None]
  - SMALL INTESTINAL HAEMORRHAGE [None]
